FAERS Safety Report 8773346 (Version 2)
Quarter: 2012Q4

REPORT INFORMATION
  Report Type: Report from Study
  Country: US (occurrence: US)
  Receive Date: 20120907
  Receipt Date: 20120925
  Transmission Date: 20130627
  Serious: Yes (Other)
  Sender: FDA-Public Use
  Company Number: US-ROCHE-1112287

PATIENT
  Age: 48 Year
  Sex: Male
  Weight: 108.96 kg

DRUGS (6)
  1. OMALIZUMAB [Suspect]
     Indication: ASTHMA
     Route: 058
     Dates: start: 20110401
  2. ADVAIR DISKUS [Concomitant]
     Indication: ASTHMA
     Dosage: 100/50
     Route: 065
  3. ALBUTEROL [Concomitant]
     Indication: ASTHMA
  4. SINGULAIR [Concomitant]
     Indication: ASTHMA
     Route: 048
  5. XYZAL [Concomitant]
     Indication: HYPERSENSITIVITY
     Route: 048
  6. ALLERGY SHOTS [Concomitant]
     Indication: HYPERSENSITIVITY

REACTIONS (5)
  - Sneezing [Recovering/Resolving]
  - Cough [Recovering/Resolving]
  - Headache [Recovering/Resolving]
  - Pyrexia [Recovered/Resolved]
  - Pneumonia [Unknown]
